FAERS Safety Report 5945307-1 (Version None)
Quarter: 2008Q4

REPORT INFORMATION
  Report Type: 
  Country: None (occurrence: None)
  Receive Date: 20081030
  Receipt Date: 20081016
  Transmission Date: 20090506
  Serious: Yes (Other)
  Sender: FDA-Public Use
  Company Number: THYM-1000822

PATIENT
  Age: 55 Year
  Sex: Male

DRUGS (8)
  1. THYMOGLOBULIN [Suspect]
     Indication: RENAL TRANSPLANT
     Dosage: INTRAVENOUS
     Route: 042
     Dates: start: 20070801
  2. CYCLOSPORINE [Concomitant]
  3. C-CSF (GRANULOCYTE COLONY STIMULATING FACTOR [Concomitant]
  4. IMMUNE GLOBULIN (HUMAN) [Concomitant]
  5. PLASMAPHERESIS (PLASMAPHERESIS) [Concomitant]
  6. TACROLIMUS [Concomitant]
  7. METHYLPREDNISOLONE 16MG TAB [Concomitant]
  8. RITUXIMAB (RITUXIMAB) [Concomitant]

REACTIONS (12)
  - GRAFT LOSS [None]
  - HAEMODIALYSIS [None]
  - HAEMODYNAMIC INSTABILITY [None]
  - HYPERVOLAEMIA [None]
  - LEUKOPENIA [None]
  - NO THERAPEUTIC RESPONSE [None]
  - OLIGURIA [None]
  - RENAL TUBULAR NECROSIS [None]
  - TRANSPLANT REJECTION [None]
  - URETERAL NECROSIS [None]
  - URINARY TRACT INFECTION [None]
  - URINOMA [None]
